FAERS Safety Report 25102305 (Version 1)
Quarter: 2025Q1

REPORT INFORMATION
  Report Type: Spontaneous
  Country: CN (occurrence: CN)
  Receive Date: 20250320
  Receipt Date: 20250320
  Transmission Date: 20250408
  Serious: Yes (Disabling)
  Sender: JOHNSON AND JOHNSON
  Company Number: CN-JNJFOC-20250333767

PATIENT
  Age: 39 Year
  Sex: Male
  Weight: 61 kg

DRUGS (2)
  1. RISPERDAL [Suspect]
     Active Substance: RISPERIDONE
     Indication: Schizophrenia
     Route: 048
     Dates: start: 20241104, end: 20250307
  2. VALPROATE MAGNESIUM [Concomitant]
     Active Substance: VALPROATE MAGNESIUM
     Indication: Affect lability
     Route: 048
     Dates: start: 20241104, end: 20250303

REACTIONS (2)
  - Renal failure [Recovering/Resolving]
  - Oedema [Recovering/Resolving]

NARRATIVE: CASE EVENT DATE: 20250303
